FAERS Safety Report 7556212-1 (Version None)
Quarter: 2011Q2

REPORT INFORMATION
  Report Type: 
  Country: None (occurrence: None)
  Receive Date: 20110620
  Receipt Date: 20110610
  Transmission Date: 20111010
  Serious: Yes (Death, Hospitalization)
  Sender: FDA-Public Use
  Company Number: TW-CELGENEUS-153-C5013-11061379

PATIENT
  Sex: Female
  Weight: 49 kg

DRUGS (13)
  1. ALLERMIN [Concomitant]
     Indication: PREMEDICATION
     Route: 051
     Dates: start: 20110516, end: 20110530
  2. IMOVANE [Concomitant]
     Indication: INSOMNIA
     Dosage: 7.5 MILLIGRAM
     Route: 046
     Dates: start: 20110530
  3. BACIDE [Concomitant]
     Dosage: 3200 MICROGRAM
     Route: 048
     Dates: start: 20110530, end: 20110531
  4. REVLIMID [Suspect]
     Indication: MULTIPLE MYELOMA
     Dosage: 25 MICROGRAM
     Route: 048
     Dates: start: 20110530, end: 20110609
  5. ENTECAVIR [Concomitant]
     Indication: HEPATITIS
     Route: 065
  6. PANTOPRAZOLE SODIUM [Concomitant]
     Indication: GASTRITIS PROPHYLAXIS
     Dosage: 80 MICROGRAM
     Route: 046
     Dates: start: 20110503, end: 20110519
  7. LASIX [Concomitant]
     Dosage: 40 MILLIGRAM
     Route: 048
     Dates: start: 20110526, end: 20110608
  8. LANTUS [Concomitant]
     Indication: DIABETES MELLITUS
     Route: 065
  9. DEXAMETHASONE [Concomitant]
     Indication: MULTIPLE MYELOMA
     Dosage: 57.1429 MICROGRAM
     Route: 046
     Dates: start: 20110503, end: 20110530
  10. LASIX [Concomitant]
     Indication: OEDEMA
     Dosage: 20 MICROGRAM
     Route: 051
     Dates: start: 20110516, end: 20110530
  11. HEPARIN [Concomitant]
     Dosage: 1000U
     Route: 051
     Dates: start: 20110516, end: 20110516
  12. HYDROCORTISONE [Concomitant]
     Indication: PREMEDICATION
     Dosage: 100 MICROGRAM
     Route: 051
     Dates: start: 20110516, end: 20110516
  13. DANZEN [Concomitant]
     Dosage: 45 MICROGRAM
     Route: 048
     Dates: start: 20110530, end: 20110601

REACTIONS (3)
  - PNEUMONIA [None]
  - FEBRILE NEUTROPENIA [None]
  - SEPTIC SHOCK [None]
